FAERS Safety Report 9581826 (Version 1)
Quarter: 2013Q4

REPORT INFORMATION
  Report Type: Spontaneous
  Country: US (occurrence: US)
  Receive Date: 20131002
  Receipt Date: 20131002
  Transmission Date: 20140711
  Serious: Yes (Other)
  Sender: FDA-Public Use
  Company Number: US-PFIZER INC-2013278619

PATIENT
  Age: 67 Year
  Sex: Female
  Weight: 73.47 kg

DRUGS (4)
  1. XELJANZ [Suspect]
     Indication: RHEUMATOID ARTHRITIS
     Dosage: 5 MG, 2X/DAY
     Route: 048
  2. PREDNISONE [Concomitant]
     Dosage: 10 MG, 1X/DAY
  3. NAPROSYN [Concomitant]
     Dosage: 500 MG, (BID) AS NEEDED
  4. HCQ [Concomitant]
     Dosage: UNK, 1X/DAY

REACTIONS (13)
  - Rectal haemorrhage [Unknown]
  - Drug intolerance [Unknown]
  - Nausea [Unknown]
  - Rash [Unknown]
  - Myalgia [Unknown]
  - Fatigue [Unknown]
  - Joint swelling [Unknown]
  - Arthralgia [Unknown]
  - Nocturia [Unknown]
  - Dry mouth [Unknown]
  - Cough [Unknown]
  - Joint stiffness [Unknown]
  - Pain [Unknown]
